FAERS Safety Report 19477868 (Version 2)
Quarter: 2021Q3

REPORT INFORMATION
  Report Type: Report from Study
  Country: US (occurrence: US)
  Receive Date: 20210630
  Receipt Date: 20210730
  Transmission Date: 20211014
  Serious: Yes (Hospitalization)
  Sender: FDA-Public Use
  Company Number: US-EXELIXIS-CABO-21041910

PATIENT
  Sex: Female

DRUGS (9)
  1. MEGESTROL ACETATE. [Concomitant]
     Active Substance: MEGESTROL ACETATE
  2. LENVIMA [Suspect]
     Active Substance: LENVATINIB
     Indication: RENAL CANCER
     Dosage: UNK
  3. LENVIMA [Suspect]
     Active Substance: LENVATINIB
     Dosage: UNK
     Dates: start: 20210712
  4. EVEROLIMUS. [Concomitant]
     Active Substance: EVEROLIMUS
  5. ALLERGY [Concomitant]
     Active Substance: UNSPECIFIED INGREDIENT
  6. LORATADINE. [Concomitant]
     Active Substance: LORATADINE
  7. CABOMETYX [Suspect]
     Active Substance: CABOZANTINIB S-MALATE
     Indication: RENAL CANCER
     Dosage: 40 MG, QD
     Route: 048
     Dates: start: 20201211
  8. REGLAN [Concomitant]
     Active Substance: METOCLOPRAMIDE HYDROCHLORIDE
  9. ONDANSETRON HCL [Concomitant]
     Active Substance: ONDANSETRON HYDROCHLORIDE

REACTIONS (3)
  - Decreased appetite [Unknown]
  - Colitis [Unknown]
  - Glossodynia [Unknown]
